FAERS Safety Report 18564890 (Version 1)
Quarter: 2020Q4

REPORT INFORMATION
  Report Type: Spontaneous
  Country: CN (occurrence: CN)
  Receive Date: 20201201
  Receipt Date: 20201201
  Transmission Date: 20210114
  Serious: Yes (Hospitalization)
  Sender: FDA-Public Use
  Company Number: CN-PFIZER INC-2020471821

PATIENT
  Age: 90 Year
  Sex: Male
  Weight: 80 kg

DRUGS (5)
  1. SODIUM CHLORIDE. [Concomitant]
     Active Substance: SODIUM CHLORIDE
     Indication: PNEUMONIA ASPIRATION
     Dosage: 100 ML, 2X/DAY
     Route: 041
     Dates: start: 20201109, end: 20201119
  2. ZYVOX [Suspect]
     Active Substance: LINEZOLID
     Indication: PNEUMONIA ASPIRATION
     Dosage: 0.6 G, 2X/DAY
     Route: 041
     Dates: start: 20201114, end: 20201122
  3. SODIUM CHLORIDE. [Concomitant]
     Active Substance: SODIUM CHLORIDE
     Dosage: 100 ML, 2X/DAY
     Route: 041
     Dates: start: 20201114, end: 20201120
  4. TIGECYCLINE. [Suspect]
     Active Substance: TIGECYCLINE
     Indication: PNEUMONIA ASPIRATION
     Dosage: 100 MG, 2X/DAY
     Route: 041
     Dates: start: 20201109, end: 20201119
  5. POLYMYXIN B. [Suspect]
     Active Substance: POLYMYXIN B
     Indication: PNEUMONIA ASPIRATION
     Dosage: 500000 IU, 2X/DAY
     Route: 041
     Dates: start: 20201114, end: 20201120

REACTIONS (2)
  - Diarrhoea [Recovering/Resolving]
  - Dysbiosis [Recovering/Resolving]

NARRATIVE: CASE EVENT DATE: 20201117
